FAERS Safety Report 14972656 (Version 7)
Quarter: 2019Q4

REPORT INFORMATION
  Report Type: Spontaneous
  Country: US (occurrence: US)
  Receive Date: 20180605
  Receipt Date: 20191210
  Transmission Date: 20200122
  Serious: No
  Sender: FDA-Public Use
  Company Number: US-PFIZER INC-2018220988

PATIENT
  Age: 57 Year
  Sex: Male

DRUGS (2)
  1. CELEBREX [Suspect]
     Active Substance: CELECOXIB
     Dosage: 200 MG, ALTERNATE DAY (ONE TABLET DAILY ALTERNATING EVERY OTHER DAY WITH 1 TABLET TWICE A DAY)
  2. CELEBREX [Suspect]
     Active Substance: CELECOXIB
     Indication: ARTHRITIS
     Dosage: 200 MG, 2X/DAY

REACTIONS (2)
  - Motor dysfunction [Unknown]
  - Off label use [Unknown]
